FAERS Safety Report 8397705-7 (Version None)
Quarter: 2012Q2

REPORT INFORMATION
  Report Type: 
  Country: None (occurrence: None)
  Receive Date: 20120531
  Receipt Date: 20120523
  Transmission Date: 20120825
  Serious: Yes (Hospitalization)
  Sender: FDA-Public Use
  Company Number: US-BAYER-2011-120255

PATIENT
  Age: 42 Year
  Sex: Female
  Weight: 117 kg

DRUGS (9)
  1. METAPROLOL [Concomitant]
     Dosage: UNK
     Dates: start: 20050101
  2. NSAIDS [Concomitant]
     Indication: PAIN
  3. LISINOPRIL [Concomitant]
     Dosage: UNK
     Dates: start: 20050101
  4. ASTHMA MEDICATIONS NOS [Concomitant]
  5. DIURETICS [Concomitant]
  6. LABETALOL HCL [Concomitant]
     Dosage: UNK
     Dates: start: 20050101
  7. ANTIBIOTICS [Concomitant]
     Dosage: UNK
     Dates: start: 20050101
  8. YASMIN [Suspect]
     Indication: ACNE
     Dosage: UNK
     Dates: start: 20050509, end: 20060703
  9. ADIPEX [Concomitant]
     Dosage: UNK

REACTIONS (2)
  - DEEP VEIN THROMBOSIS [None]
  - PULMONARY EMBOLISM [None]
